FAERS Safety Report 4441861-X (Version None)
Quarter: 2004Q3

REPORT INFORMATION
  Report Type: 
  Country: None (occurrence: None)
  Receive Date: 20040901
  Receipt Date: 20040823
  Transmission Date: 20050211
  Serious: Yes (Hospitalization)
  Sender: FDA-Public Use
  Company Number: 2004054279

PATIENT
  Age: 60 Year
  Sex: Female
  Weight: 39 kg

DRUGS (3)
  1. UNASYN [Suspect]
     Indication: PNEUMONIA
     Dosage: 6 GRAM (1.5 GRAM, 4 IN 1 D), INTRAVENOUS
     Route: 042
     Dates: start: 20040705, end: 20040712
  2. DEXAMETHASONE [Concomitant]
  3. SODIUM GUALENATE (SODIUM GUALENATE) [Concomitant]

REACTIONS (6)
  - ABDOMINAL PAIN [None]
  - CLOSTRIDIUM COLITIS [None]
  - DIARRHOEA [None]
  - ENTEROCOLITIS HAEMORRHAGIC [None]
  - KLEBSIELLA INFECTION [None]
  - PETECHIAE [None]
